FAERS Safety Report 7831898-2 (Version None)
Quarter: 2011Q4

REPORT INFORMATION
  Report Type: 
  Country: None (occurrence: None)
  Receive Date: 20111021
  Receipt Date: 20111012
  Transmission Date: 20120403
  Serious: Yes (Other)
  Sender: FDA-Public Use
  Company Number: FR-ASTRAZENECA-2011SE61669

PATIENT
  Sex: Male

DRUGS (6)
  1. DIPRIVAN [Suspect]
     Route: 042
     Dates: start: 20110310
  2. SUFENTA PRESERVATIVE FREE [Suspect]
     Route: 042
     Dates: start: 20110310
  3. ATROPINE [Concomitant]
     Dates: start: 20110310
  4. LANTUS [Concomitant]
     Indication: DIABETES MELLITUS
     Dates: start: 20100801
  5. MIDAZOLAM HCL [Concomitant]
     Dates: start: 20110310
  6. NEXIUM [Concomitant]
     Dates: start: 20101104, end: 20110315

REACTIONS (2)
  - CYTOLYTIC HEPATITIS [None]
  - HEPATITIS CHOLESTATIC [None]
